FAERS Safety Report 10238294 (Version 1)
Quarter: 2014Q2

REPORT INFORMATION
  Report Type: Spontaneous
  Country: US (occurrence: US)
  Receive Date: 20140616
  Receipt Date: 20140616
  Transmission Date: 20141212
  Serious: No
  Sender: FDA-Public Use
  Company Number: US-PFIZER INC-2014160993

PATIENT
  Age: 67 Year
  Sex: Female
  Weight: 70.3 kg

DRUGS (2)
  1. NEURONTIN [Suspect]
     Indication: PAIN
     Dosage: 600 MG, 3X/DAY
     Route: 048
     Dates: start: 201405, end: 20140607
  2. MELOXICAM [Concomitant]
     Dosage: UNK

REACTIONS (1)
  - Hypoaesthesia [Recovered/Resolved]
